FAERS Safety Report 5248622-2 (Version None)
Quarter: 2007Q1

REPORT INFORMATION
  Report Type: 
  Country: None (occurrence: None)
  Receive Date: 20070222
  Receipt Date: 20070212
  Transmission Date: 20070707
  Serious: Yes (Hospitalization)
  Sender: FDA-Public Use
  Company Number: 2007-00328

PATIENT
  Age: 63 Year
  Sex: Male

DRUGS (3)
  1. VELCADE [Suspect]
     Indication: MULTIPLE MYELOMA
     Dates: start: 20060101, end: 20060101
  2. THALIDOMIDE [Suspect]
     Indication: MULTIPLE MYELOMA
     Dosage: 400.00 MG, ORAL
     Route: 048
     Dates: start: 20040501, end: 20060501
  3. DEXAMETHASONE [Concomitant]

REACTIONS (3)
  - BLOOD COUNT ABNORMAL [None]
  - DRUG INEFFECTIVE [None]
  - VIRAL RASH [None]
